FAERS Safety Report 4940213-3 (Version None)
Quarter: 2006Q1

REPORT INFORMATION
  Report Type: 
  Country: None (occurrence: None)
  Receive Date: 20060310
  Receipt Date: 20050829
  Transmission Date: 20060701
  Serious: Yes (Hospitalization)
  Sender: FDA-Public Use
  Company Number: US-MERCK-0508USA04615

PATIENT
  Age: 72 Year
  Sex: Female
  Weight: 69 kg

DRUGS (7)
  1. VIOXX [Suspect]
     Indication: ARTHRITIS
     Route: 048
     Dates: start: 20010129
  2. VIOXX [Suspect]
     Route: 048
     Dates: start: 20020122
  3. ASPIRIN [Concomitant]
     Route: 048
  4. DILTIAZEM HCL [Concomitant]
     Route: 065
  5. HYZAAR [Concomitant]
     Route: 048
  6. IMDUR [Concomitant]
     Route: 048
  7. FOSAMAX [Concomitant]
     Route: 048

REACTIONS (3)
  - ANGINA PECTORIS [None]
  - CONSTIPATION [None]
  - CORONARY ARTERY STENOSIS [None]
